FAERS Safety Report 4597106-3 (Version None)
Quarter: 2005Q1

REPORT INFORMATION
  Report Type: 
  Country: None (occurrence: None)
  Receive Date: 20050223
  Receipt Date: 20050209
  Transmission Date: 20050727
  Serious: Yes (Other)
  Sender: FDA-Public Use
  Company Number: 601103

PATIENT
  Age: 64 Year
  Sex: Male
  Weight: 58.9 kg

DRUGS (1)
  1. RECOMBINATE [Suspect]
     Indication: FACTOR VIII DEFICIENCY
     Dosage: INTRAVENOUS
     Route: 042
     Dates: start: 19730101, end: 20020501

REACTIONS (1)
  - NO ADVERSE DRUG EFFECT [None]
